FAERS Safety Report 8475003-0 (Version None)
Quarter: 2012Q2

REPORT INFORMATION
  Report Type: 
  Country: None (occurrence: None)
  Receive Date: 20120628
  Receipt Date: 20120619
  Transmission Date: 20120825
  Serious: Yes (Hospitalization)
  Sender: FDA-Public Use
  Company Number: US-BAYER-2011-053432

PATIENT
  Age: 26 Year
  Sex: Female
  Weight: 113.38 kg

DRUGS (11)
  1. MORPHINE [Concomitant]
     Indication: MUSCULOSKELETAL PAIN
  2. PHENERGAN HCL [Concomitant]
     Indication: BACK PAIN
  3. ACETAMINOPHEN [Concomitant]
  4. MORPHINE [Concomitant]
     Indication: BACK PAIN
  5. MOTRIN [Concomitant]
  6. VALIUM [Concomitant]
     Indication: BACK PAIN
  7. VALIUM [Concomitant]
     Indication: MUSCULOSKELETAL PAIN
  8. TYLOX [Concomitant]
     Indication: PAIN
  9. DROSPIRENONE AND ETHINYL ESTRADIOL [Suspect]
     Dosage: UNK
     Dates: start: 20090301, end: 20090601
  10. LORTAB [Concomitant]
     Indication: PAIN
  11. PHENERGAN HCL [Concomitant]
     Indication: MUSCULOSKELETAL PAIN

REACTIONS (8)
  - PSYCHOLOGICAL TRAUMA [None]
  - INJURY [None]
  - PAIN [None]
  - ANXIETY [None]
  - PULMONARY EMBOLISM [None]
  - DEEP VEIN THROMBOSIS [None]
  - EMOTIONAL DISTRESS [None]
  - FEAR [None]
